FAERS Safety Report 4891997-4 (Version None)
Quarter: 2006Q1

REPORT INFORMATION
  Report Type: 
  Country: None (occurrence: None)
  Receive Date: 20060126
  Receipt Date: 20060117
  Transmission Date: 20060701
  Serious: Yes (Other)
  Sender: FDA-Public Use
  Company Number: JP-BRISTOL-MYERS SQUIBB COMPANY-13252051

PATIENT
  Age: 27 Year
  Sex: Male

DRUGS (3)
  1. BRIPLATIN [Suspect]
     Indication: TESTIS CANCER
     Route: 041
     Dates: start: 20021010, end: 20030107
  2. BLEOMYCIN [Suspect]
     Indication: TESTIS CANCER
     Route: 041
     Dates: start: 20021010, end: 20021205
  3. VEPESID [Suspect]
     Indication: TESTIS CANCER
     Route: 041
     Dates: start: 20021010, end: 20030107

REACTIONS (1)
  - AZOOSPERMIA [None]
